FAERS Safety Report 8981327 (Version 1)
Quarter: 2012Q4

REPORT INFORMATION
  Report Type: Report from Study
  Country: AU (occurrence: AU)
  Receive Date: 20121221
  Receipt Date: 20121221
  Transmission Date: 20130627
  Serious: Yes (Hospitalization)
  Sender: FDA-Public Use
  Company Number: AU-US-EMD SERONO, INC.-7181718

PATIENT

DRUGS (1)
  1. BLINDED STUDY MEDICATION [Suspect]
     Indication: INFERTILITY
     Route: 061

REACTIONS (2)
  - Large for dates baby [Recovering/Resolving]
  - Foetal exposure during pregnancy [Recovered/Resolved]
